FAERS Safety Report 7701301-1 (Version None)
Quarter: 2011Q3

REPORT INFORMATION
  Report Type: 
  Country: None (occurrence: None)
  Receive Date: 20110822
  Receipt Date: 20110818
  Transmission Date: 20111222
  Serious: Yes (Other)
  Sender: FDA-Public Use
  Company Number: US-AMGEN-USASP2011006239

PATIENT
  Age: 76 Year
  Sex: Female

DRUGS (5)
  1. ACETAMINOPHEN [Concomitant]
  2. CYCLOPHOSPHAMIDE [Concomitant]
     Indication: IDIOPATHIC THROMBOCYTOPENIC PURPURA
  3. PREDNISONE [Concomitant]
     Indication: IDIOPATHIC THROMBOCYTOPENIC PURPURA
  4. NPLATE [Suspect]
     Indication: IDIOPATHIC THROMBOCYTOPENIC PURPURA
     Dosage: 300 A?G, UNK
     Dates: start: 20090813, end: 20100805
  5. CORTICOSTEROIDS [Concomitant]

REACTIONS (8)
  - THROMBOCYTOPENIA [None]
  - ESSENTIAL THROMBOCYTHAEMIA [None]
  - MYELOPROLIFERATIVE DISORDER [None]
  - ARTHROTOXICITY [None]
  - MYALGIA [None]
  - MYELODYSPLASTIC SYNDROME [None]
  - THERAPEUTIC RESPONSE DECREASED [None]
  - ANAEMIA [None]
